FAERS Safety Report 4748153-X (Version None)
Quarter: 2005Q3

REPORT INFORMATION
  Report Type: 
  Country: None (occurrence: None)
  Receive Date: 20050818
  Receipt Date: 20050615
  Transmission Date: 20060218
  Serious: No
  Sender: FDA-Public Use
  Company Number: US-GLAXOSMITHKLINE-A0562798A

PATIENT
  Age: 49 Year
  Sex: Male

DRUGS (2)
  1. STELAZINE [Suspect]
     Indication: SCHIZOPHRENIA
     Route: 065
     Dates: start: 19890101, end: 19950101
  2. IMIPRAMINE [Concomitant]

REACTIONS (2)
  - ILL-DEFINED DISORDER [None]
  - TARDIVE DYSKINESIA [None]
